FAERS Safety Report 12838745 (Version 2)
Quarter: 2016Q4

REPORT INFORMATION
  Report Type: Spontaneous
  Country: US (occurrence: US)
  Receive Date: 20161012
  Receipt Date: 20161107
  Transmission Date: 20170207
  Serious: Yes (Death)
  Sender: FDA-Public Use
  Company Number: US-PFIZER INC-2016460275

PATIENT
  Age: 70 Year
  Sex: Male
  Weight: 91 kg

DRUGS (4)
  1. AFINITOR [Concomitant]
     Active Substance: EVEROLIMUS
     Dosage: 5 MG, DAILY
     Dates: start: 201606
  2. XALKORI [Suspect]
     Active Substance: CRIZOTINIB
     Dosage: 250 MG, 1X/DAY
     Dates: start: 201604
  3. XALKORI [Suspect]
     Active Substance: CRIZOTINIB
     Indication: PANCREATIC CARCINOMA
     Dosage: 200 MG, 2X/DAY
  4. MEKINIST [Concomitant]
     Active Substance: TRAMETINIB DIMETHYL SULFOXIDE
     Dosage: 1 MG, DAILY
     Dates: start: 201605

REACTIONS (2)
  - Product use issue [Unknown]
  - Neoplasm progression [Fatal]
